FAERS Safety Report 11909914 (Version 1)
Quarter: 2016Q1

REPORT INFORMATION
  Report Type: Spontaneous
  Country: US (occurrence: US)
  Receive Date: 20160112
  Receipt Date: 20160112
  Transmission Date: 20160526
  Serious: No
  Sender: FDA-Public Use
  Company Number: US-BAYER-2016-006141

PATIENT
  Sex: Female

DRUGS (3)
  1. ALEVE [Suspect]
     Active Substance: NAPROXEN SODIUM
     Indication: BACK PAIN
     Dosage: 2 DF, PRN
     Route: 048
     Dates: start: 2013
  2. ALEVE [Suspect]
     Active Substance: NAPROXEN SODIUM
     Indication: BACK PAIN
     Dosage: 2 DF
     Route: 048
     Dates: start: 20160111
  3. ALEVE [Suspect]
     Active Substance: NAPROXEN SODIUM
     Indication: BACK PAIN
     Dosage: 2 DF
     Route: 048
     Dates: start: 20160110

REACTIONS (3)
  - Product use issue [None]
  - Drug ineffective [None]
  - Expired product administered [None]

NARRATIVE: CASE EVENT DATE: 20160110
